FAERS Safety Report 10360197 (Version 1)
Quarter: 2014Q3

REPORT INFORMATION
  Report Type: Spontaneous
  Country: PT (occurrence: None)
  Receive Date: 20140730
  Receipt Date: 20140730
  Transmission Date: 20150326
  Serious: Yes (Life-Threatening, Hospitalization, Other)
  Sender: FDA-Public Use
  Company Number: ADR-2014-01325

PATIENT
  Age: 41 Year
  Sex: Male

DRUGS (1)
  1. BACLOFEN INTRATHECAL [Suspect]
     Active Substance: BACLOFEN

REACTIONS (20)
  - Drug withdrawal syndrome [None]
  - Electrocardiogram abnormal [None]
  - Acute respiratory failure [None]
  - Pneumonia [None]
  - Multi-organ failure [None]
  - Rhabdomyolysis [None]
  - Renal failure acute [None]
  - Pulseless electrical activity [None]
  - Haemodynamic instability [None]
  - Myocardial necrosis marker increased [None]
  - Septic shock [None]
  - Metabolic acidosis [None]
  - Norepinephrine increased [None]
  - Cognitive disorder [None]
  - Device connection issue [None]
  - Device leakage [None]
  - Cardiac arrest [None]
  - Convulsion [None]
  - Weaning failure [None]
  - Hyperlactacidaemia [None]
